FAERS Safety Report 6836561-2 (Version None)
Quarter: 2010Q3

REPORT INFORMATION
  Report Type: 
  Country: None (occurrence: None)
  Receive Date: 20100713
  Receipt Date: 20100705
  Transmission Date: 20110219
  Serious: Yes (Other)
  Sender: FDA-Public Use
  Company Number: BR-ABBOTT-09P-020-0611406-00

PATIENT
  Sex: Male
  Weight: 50 kg

DRUGS (1)
  1. HUMIRA [Suspect]
     Indication: CROHN'S DISEASE
     Route: 058
     Dates: start: 20090929

REACTIONS (5)
  - FISTULA [None]
  - ILL-DEFINED DISORDER [None]
  - INTESTINAL FISTULA [None]
  - INTESTINAL STENOSIS [None]
  - ORAL DISORDER [None]
